FAERS Safety Report 20988350 (Version 1)
Quarter: 2022Q2

REPORT INFORMATION
  Report Type: Spontaneous
  Country: US (occurrence: US)
  Receive Date: 20220621
  Receipt Date: 20220621
  Transmission Date: 20220721
  Serious: No
  Sender: FDA-Public Use
  Company Number: US-PFIZER INC-PV202200005296

PATIENT
  Age: 58 Year
  Sex: Male

DRUGS (2)
  1. PREGABALIN [Interacting]
     Active Substance: PREGABALIN
     Indication: Neuropathy peripheral
     Dosage: UNK
  2. XTAMPZA ER [Interacting]
     Active Substance: OXYCODONE
     Dosage: UNK

REACTIONS (2)
  - Drug ineffective [Unknown]
  - Potentiating drug interaction [Unknown]
